FAERS Safety Report 8241383-4 (Version None)
Quarter: 2012Q1

REPORT INFORMATION
  Report Type: 
  Country: None (occurrence: None)
  Receive Date: 20120314
  Receipt Date: 20110520
  Transmission Date: 20120608
  Serious: No
  Sender: FDA-Public Use
  Company Number: PHHY2011US44127

PATIENT
  Sex: Male

DRUGS (1)
  1. FANAPT [Suspect]
     Dosage: 8 MG, BID, ORAL ; 12 MG, BID, ORAL
     Route: 048

REACTIONS (5)
  - MOVEMENT DISORDER [None]
  - RENAL DISORDER [None]
  - FATIGUE [None]
  - DRY MOUTH [None]
  - DIZZINESS [None]
